FAERS Safety Report 15856377 (Version 1)
Quarter: 2019Q1

REPORT INFORMATION
  Report Type: Spontaneous
  Country: CH (occurrence: CH)
  Receive Date: 20190123
  Receipt Date: 20190123
  Transmission Date: 20190417
  Serious: Yes (Other)
  Sender: FDA-Public Use
  Company Number: CH-ABBVIE-19S-151-2631488-00

PATIENT
  Sex: Male

DRUGS (1)
  1. LUCRIN [Suspect]
     Active Substance: LEUPROLIDE ACETATE
     Indication: PRODUCT USED FOR UNKNOWN INDICATION
     Route: 065
     Dates: start: 20170617, end: 20180915

REACTIONS (15)
  - Peripheral coldness [Unknown]
  - Decreased vibratory sense [Unknown]
  - Polyp [Unknown]
  - Radiation proctitis [Unknown]
  - Red blood cell count decreased [Unknown]
  - Haemoglobin decreased [Unknown]
  - Haemorrhoids [Unknown]
  - Pulse absent [Unknown]
  - Limb discomfort [Unknown]
  - Burning sensation [Unknown]
  - Blood chloride decreased [Unknown]
  - Polyneuropathy [Unknown]
  - Gastrointestinal tract adenoma [Unknown]
  - Hypogammaglobulinaemia [Unknown]
  - Haematocrit decreased [Unknown]
